FAERS Safety Report 10055739 (Version 5)
Quarter: 2018Q3

REPORT INFORMATION
  Report Type: Report from Study
  Country: US (occurrence: US)
  Receive Date: 20140403
  Receipt Date: 20180912
  Transmission Date: 20181010
  Serious: Yes (Other)
  Sender: FDA-Public Use
  Company Number: US-SA-2013SA118907

PATIENT
  Age: 78 Year
  Sex: Female

DRUGS (3)
  1. CEREZYME [Suspect]
     Active Substance: IMIGLUCERASE
     Dosage: 45 IU/KG,QOW
     Route: 041
     Dates: start: 20130416
  2. CEREZYME [Suspect]
     Active Substance: IMIGLUCERASE
     Indication: GAUCHER^S DISEASE
     Dosage: 45 IU/KG,Q3W
     Route: 041
     Dates: start: 19930309
  3. CEREZYME [Suspect]
     Active Substance: IMIGLUCERASE
     Dosage: DOSE: 4800 UNITS: Q3
     Route: 041
     Dates: start: 19990731

REACTIONS (11)
  - Contusion [Unknown]
  - Arthralgia [Unknown]
  - Gout [Unknown]
  - Arthralgia [Not Recovered/Not Resolved]
  - Arthralgia [Not Recovered/Not Resolved]
  - Abdominal pain upper [Recovered/Resolved]
  - Abdominal discomfort [Unknown]
  - Influenza [Unknown]
  - Dyspnoea [Recovered/Resolved]
  - Osteoarthritis [Not Recovered/Not Resolved]
  - Fatigue [Recovered/Resolved]

NARRATIVE: CASE EVENT DATE: 20131113
